FAERS Safety Report 17158803 (Version 1)
Quarter: 2019Q4

REPORT INFORMATION
  Report Type: Spontaneous
  Country: AU (occurrence: AU)
  Receive Date: 20191216
  Receipt Date: 20191216
  Transmission Date: 20200122
  Serious: Yes (Other)
  Sender: FDA-Public Use
  Company Number: AU-OXFORD PHARMACEUTICALS, LLC-2019OXF00175

PATIENT
  Age: 63 Year
  Sex: Female

DRUGS (1)
  1. BACLOFEN. [Suspect]
     Active Substance: BACLOFEN
     Dosage: 30 MG, 1X/DAY
     Route: 048

REACTIONS (1)
  - Toxic encephalopathy [Recovered/Resolved]
